FAERS Safety Report 6445056-X (Version None)
Quarter: 2009Q4

REPORT INFORMATION
  Report Type: 
  Country: None (occurrence: None)
  Receive Date: 20091118
  Receipt Date: 20091106
  Transmission Date: 20100525
  Serious: Yes (Hospitalization)
  Sender: FDA-Public Use
  Company Number: GB-PFIZER INC-2009247089

PATIENT
  Age: 58 Year
  Sex: Female
  Weight: 64.1 kg

DRUGS (2)
  1. FESOTERODINE [Suspect]
     Indication: HYPERTONIC BLADDER
     Dosage: 4 MG, 1X/DAY
     Route: 048
     Dates: start: 20090702, end: 20090727
  2. FESOTERODINE [Suspect]
     Dosage: 8 MG, 1X/DAY
     Route: 048
     Dates: start: 20090728, end: 20090729

REACTIONS (5)
  - CHEST DISCOMFORT [None]
  - DYSPNOEA [None]
  - HEADACHE [None]
  - PALPITATIONS [None]
  - THROAT TIGHTNESS [None]
